FAERS Safety Report 12087890 (Version 1)
Quarter: 2016Q1

REPORT INFORMATION
  Report Type: Spontaneous
  Country: US (occurrence: US)
  Receive Date: 20160217
  Receipt Date: 20160217
  Transmission Date: 20160526
  Serious: No
  Sender: FDA-Public Use
  Company Number: US-ALLERGAN-1519294US

PATIENT
  Age: 79 Year
  Sex: Female
  Weight: 88 kg

DRUGS (7)
  1. ARTIFICIAL TEARS [Concomitant]
     Active Substance: GLYCERIN\HYPROMELLOSES\POLYETHYLENE GLYCOL 400
     Dosage: UNK UNK, PRN
  2. CLONIDINE. [Concomitant]
     Active Substance: CLONIDINE
  3. SYSTANE BALANCE [Suspect]
     Active Substance: PROPYLENE GLYCOL
     Indication: MEIBOMIANITIS
     Dosage: UNK UNK, QHS
     Route: 047
     Dates: start: 20140111
  4. RESTASIS [Suspect]
     Active Substance: CYCLOSPORINE
     Indication: DRY EYE
     Dosage: UNK UNK, BID
     Route: 047
     Dates: start: 20130211
  5. XALATAN [Suspect]
     Active Substance: LATANOPROST
     Indication: GLAUCOMA
     Dosage: 2 GTT, QHS
     Route: 047
     Dates: start: 20120815
  6. RESTASIS [Suspect]
     Active Substance: CYCLOSPORINE
     Indication: MEIBOMIANITIS
  7. LABETALOL [Concomitant]
     Active Substance: LABETALOL\LABETALOL HYDROCHLORIDE
     Indication: HYPERTENSION
     Dosage: 200 MG, UNK

REACTIONS (8)
  - Inappropriate schedule of drug administration [Unknown]
  - Cataract [Not Recovered/Not Resolved]
  - Off label use [Unknown]
  - Conjunctival hyperaemia [Recovered/Resolved]
  - Drain placement [Unknown]
  - Intraocular pressure increased [Recovered/Resolved]
  - Rash [Not Recovered/Not Resolved]
  - Eye discharge [Not Recovered/Not Resolved]

NARRATIVE: CASE EVENT DATE: 20150730
